FAERS Safety Report 17464596 (Version 1)
Quarter: 2020Q1

REPORT INFORMATION
  Report Type: Spontaneous
  Country: US (occurrence: US)
  Receive Date: 20200226
  Receipt Date: 20200226
  Transmission Date: 20200409
  Serious: No
  Sender: FDA-Public Use
  Company Number: NVSC2020US055069

PATIENT

DRUGS (1)
  1. VOLTAREN [Suspect]
     Active Substance: DICLOFENAC SODIUM
     Indication: BACK INJURY
     Dosage: UNK
     Route: 065

REACTIONS (4)
  - Expired product administered [Unknown]
  - Product administered at inappropriate site [Unknown]
  - Drug ineffective for unapproved indication [Unknown]
  - Product use in unapproved indication [Unknown]
